FAERS Safety Report 5448386-3 (Version None)
Quarter: 2007Q3

REPORT INFORMATION
  Report Type: 
  Country: None (occurrence: None)
  Receive Date: 20070911
  Receipt Date: 20070907
  Transmission Date: 20080115
  Serious: Yes (Hospitalization, Other)
  Sender: FDA-Public Use
  Company Number: JP-ELI_LILLY_AND_COMPANY-JP200706006162

PATIENT
  Age: 47 Year
  Sex: Female

DRUGS (3)
  1. ZYPREXA [Suspect]
     Indication: ANXIETY DISORDER
     Dosage: 20 MG, DAILY (1/D)
     Route: 048
     Dates: end: 20061012
  2. PAROXETINE HYDROCHLORIDE [Concomitant]
     Indication: ANXIETY DISORDER
     Dosage: 20 MG, DAILY (1/D)
     Route: 048
     Dates: end: 20061012
  3. DROPERIDOL [Concomitant]
     Indication: GENERAL ANAESTHESIA
     Dosage: 1.25 MG, UNK
     Route: 042
     Dates: start: 20061012, end: 20061012

REACTIONS (5)
  - BRAIN OEDEMA [None]
  - HYPOKALAEMIA [None]
  - INTRACRANIAL ANEURYSM [None]
  - NEUROLEPTIC MALIGNANT SYNDROME [None]
  - PYREXIA [None]
